FAERS Safety Report 7087046-2 (Version None)
Quarter: 2010Q4

REPORT INFORMATION
  Report Type: 
  Country: None (occurrence: None)
  Receive Date: 20101106
  Receipt Date: 20101028
  Transmission Date: 20110411
  Serious: No
  Sender: FDA-Public Use
  Company Number: US-WYE-H17777410

PATIENT
  Sex: Female
  Weight: 59.02 kg

DRUGS (3)
  1. PRISTIQ [Suspect]
     Indication: DEPRESSION
     Dates: start: 20100701, end: 20100101
  2. PRISTIQ [Suspect]
     Dates: start: 20100101
  3. WELLBUTRIN [Concomitant]

REACTIONS (2)
  - DRUG INEFFECTIVE [None]
  - MEDICATION RESIDUE [None]
